FAERS Safety Report 6017236-9 (Version None)
Quarter: 2008Q4

REPORT INFORMATION
  Report Type: 
  Country: None (occurrence: None)
  Receive Date: 20081219
  Receipt Date: 20081215
  Transmission Date: 20090506
  Serious: Yes (Hospitalization)
  Sender: FDA-Public Use
  Company Number: 08-679

PATIENT
  Age: 74 Year
  Sex: Female

DRUGS (3)
  1. VITAMIN D [Suspect]
     Indication: VITAMIN D DECREASED
     Dosage: 1.25 MG, ORAL
     Route: 048
  2. BENADRYL [Concomitant]
  3. PREDNISONE [Concomitant]

REACTIONS (8)
  - ABDOMINAL PAIN UPPER [None]
  - DIARRHOEA [None]
  - DYSPNOEA [None]
  - ERYTHEMA [None]
  - HYPERSENSITIVITY [None]
  - LIP SWELLING [None]
  - PRURITUS [None]
  - SWOLLEN TONGUE [None]
